FAERS Safety Report 21542926 (Version 1)
Quarter: 2022Q4

REPORT INFORMATION
  Report Type: Report from Study
  Country: US (occurrence: US)
  Receive Date: 20221102
  Receipt Date: 20221102
  Transmission Date: 20230113
  Serious: No
  Sender: FDA-Public Use
  Company Number: US-002147023-NVSC2022US179593

PATIENT
  Sex: Male

DRUGS (1)
  1. ENTRESTO [Suspect]
     Active Substance: SACUBITRIL\VALSARTAN
     Indication: Product used for unknown indication
     Dosage: 1 DOSAGE FORM, BID
     Route: 048
     Dates: start: 202108, end: 20221027

REACTIONS (4)
  - Skin discolouration [Recovering/Resolving]
  - Asthenia [Recovering/Resolving]
  - Dizziness postural [Recovering/Resolving]
  - Hypotension [Recovering/Resolving]
